FAERS Safety Report 10401922 (Version 1)
Quarter: 2014Q3

REPORT INFORMATION
  Report Type: Spontaneous
  Country: US (occurrence: None)
  Receive Date: 20140820
  Receipt Date: 20140820
  Transmission Date: 20150326
  Serious: Yes (Hospitalization)
  Sender: FDA-Public Use
  Company Number: None

PATIENT
  Age: 39 Year
  Sex: Female
  Weight: 79.38 kg

DRUGS (1)
  1. REMICADE [Suspect]
     Active Substance: INFLIXIMAB
     Indication: RHEUMATOID ARTHRITIS
     Dosage: EVERY COUPLE MONTH, INTO A VEIN
     Dates: start: 20140424, end: 20140512

REACTIONS (6)
  - Flushing [None]
  - Vision blurred [None]
  - Eating disorder [None]
  - Hypertension [None]
  - Pain [None]
  - Pain in jaw [None]

NARRATIVE: CASE EVENT DATE: 20140501
